FAERS Safety Report 17595393 (Version 2)
Quarter: 2020Q1

REPORT INFORMATION
  Report Type: Spontaneous
  Country: US (occurrence: US)
  Receive Date: 20200329
  Receipt Date: 20200330
  Transmission Date: 20200409
  Serious: Yes (Hospitalization)
  Sender: FDA-Public Use
  Company Number: US-BIOGEN-2020BI00853081

PATIENT
  Age: 37 Year
  Sex: Female

DRUGS (1)
  1. TYSABRI [Suspect]
     Active Substance: NATALIZUMAB
     Indication: MULTIPLE SCLEROSIS
     Route: 065
     Dates: start: 20130924

REACTIONS (8)
  - Depressed mood [Not Recovered/Not Resolved]
  - Balance disorder [Unknown]
  - Memory impairment [Unknown]
  - Multiple sclerosis [Not Recovered/Not Resolved]
  - Dysphemia [Unknown]
  - Multiple sclerosis relapse [Unknown]
  - Urosepsis [Recovered/Resolved]
  - Asthenia [Unknown]

NARRATIVE: CASE EVENT DATE: 202003
